FAERS Safety Report 8804772 (Version 1)
Quarter: 2012Q4

REPORT INFORMATION
  Report Type: 
  Country: US (occurrence: US)
  Receive Date: 20120924
  Receipt Date: 20120924
  Transmission Date: 20130627
  Serious: No
  Sender: FDA-Public Use
  Company Number: US-009507513-1209USA007270

PATIENT
  Sex: Male

DRUGS (3)
  1. PEG-INTRON [Suspect]
     Indication: HEPATITIS C
     Dosage: UNK
     Dates: start: 20120307
  2. REBETOL [Suspect]
     Indication: HEPATITIS C
     Dosage: UNK
     Dates: start: 20120307
  3. VICTRELIS [Suspect]
     Indication: HEPATITIS C
     Dosage: UNK
     Dates: start: 20120411

REACTIONS (8)
  - Bone pain [Unknown]
  - Memory impairment [Unknown]
  - Dysgeusia [Unknown]
  - Chills [Unknown]
  - Pyrexia [Unknown]
  - Dyspnoea [Unknown]
  - Decreased appetite [Recovered/Resolved]
  - Fatigue [Unknown]
